FAERS Safety Report 5105209-X (Version None)
Quarter: 2006Q3

REPORT INFORMATION
  Report Type: 
  Country: None (occurrence: None)
  Receive Date: 20060911
  Receipt Date: 20060822
  Transmission Date: 20061208
  Serious: Yes (Disabling, Other)
  Sender: FDA-Public Use
  Company Number: US200608004773

PATIENT
  Age: 59 Year
  Sex: Female

DRUGS (2)
  1. ILETIN [Suspect]
     Indication: DIABETES MELLITUS INSULIN-DEPENDENT
  2. HUMALOG [Suspect]
     Indication: DIABETES MELLITUS INSULIN-DEPENDENT

REACTIONS (7)
  - BLOOD GLUCOSE INCREASED [None]
  - DIABETIC RETINOPATHY [None]
  - DRUG HYPERSENSITIVITY [None]
  - LIPODYSTROPHY ACQUIRED [None]
  - PRURITUS [None]
  - VISUAL DISTURBANCE [None]
  - VISUAL FIELD DEFECT [None]
